FAERS Safety Report 9731855 (Version 4)
Quarter: 2014Q1

REPORT INFORMATION
  Report Type: Spontaneous
  Country: KR (occurrence: KR)
  Receive Date: 20131205
  Receipt Date: 20140109
  Transmission Date: 20141002
  Serious: Yes (Other)
  Sender: FDA-Public Use
  Company Number: KR-ROCHE-1304892

PATIENT
  Age: 69 Year
  Sex: Male

DRUGS (4)
  1. RANIBIZUMAB [Suspect]
     Indication: AGE-RELATED MACULAR DEGENERATION
     Route: 050
     Dates: start: 20111208
  2. ALCAINE [Concomitant]
     Route: 065
  3. OCUFLOX [Concomitant]
     Route: 065
  4. POVIDONE IODINE [Concomitant]

REACTIONS (2)
  - Retinal pigment epithelial tear [Unknown]
  - Visual acuity reduced [Unknown]
